FAERS Safety Report 7252007-7 (Version None)
Quarter: 2011Q1

REPORT INFORMATION
  Report Type: 
  Country: None (occurrence: None)
  Receive Date: 20110128
  Receipt Date: 20100108
  Transmission Date: 20110831
  Serious: No
  Sender: FDA-Public Use
  Company Number: US-ABBOTT-10P-163-0619014-00

PATIENT
  Sex: Male

DRUGS (1)
  1. HUMIRA [Suspect]
     Indication: PRODUCT USED FOR UNKNOWN INDICATION

REACTIONS (7)
  - NASOPHARYNGITIS [None]
  - ASTHENIA [None]
  - EAR HAEMORRHAGE [None]
  - INCREASED UPPER AIRWAY SECRETION [None]
  - FATIGUE [None]
  - RESPIRATORY TRACT CONGESTION [None]
  - RHINORRHOEA [None]
